FAERS Safety Report 5627835-1 (Version None)
Quarter: 2008Q1

REPORT INFORMATION
  Report Type: 
  Country: None (occurrence: None)
  Receive Date: 20080215
  Receipt Date: 20080205
  Transmission Date: 20080703
  Serious: Yes (Life-Threatening, Hospitalization)
  Sender: FDA-Public Use
  Company Number: CA-ASTRAZENECA-2007AC00202

PATIENT
  Age: 25 Year
  Sex: Female

DRUGS (16)
  1. MARCAINE [Suspect]
     Indication: BACK PAIN
     Dosage: WITHOUT ADVERSE EFFECT
     Route: 058
  2. MARCAINE [Suspect]
     Dosage: WITHOUT ADVERSE EFFECT
     Route: 058
  3. MARCAINE [Suspect]
     Route: 058
  4. XYLOCAINE [Suspect]
     Indication: BACK PAIN
     Dosage: XYLOCAINE: WITHOUT ADVERSE EFFECT
     Route: 058
  5. XYLOCAINE [Suspect]
     Dosage: XYLOCAINE: WITHOUT ADVERSE EFFECT
     Route: 058
  6. XYLOCAINE [Suspect]
     Dosage: XYLOCAINE
     Route: 058
  7. XYLOCAINE [Suspect]
     Dosage: LIDOCAINE: ADMINISTERED TO HER HUSBAND FOR THROAT SURGERY
  8. XYLOCAINE [Suspect]
     Dosage: LIDOCAINE: SKIN CONTACT WITH LIDOCAINE SPILLED ON TABLE
     Route: 003
  9. METHYLPREDNISOLONE [Concomitant]
     Indication: BACK PAIN
  10. METHYLPREDNISOLONE [Concomitant]
  11. METHYLPREDNISOLONE [Concomitant]
  12. FLOVENT [Concomitant]
     Indication: ASTHMA
  13. VENTOLIN [Concomitant]
     Indication: ASTHMA
  14. DILAUDID [Concomitant]
     Indication: BACK PAIN
  15. NAPROSYN [Concomitant]
     Indication: BACK PAIN
  16. FLEXERIL [Concomitant]
     Indication: BACK PAIN

REACTIONS (7)
  - ANAPHYLACTIC REACTION [None]
  - ANGIOEDEMA [None]
  - COUGH [None]
  - DYSPHONIA [None]
  - LIP SWELLING [None]
  - ORAL PRURITUS [None]
  - THROAT TIGHTNESS [None]
